FAERS Safety Report 15240346 (Version 4)
Quarter: 2020Q3

REPORT INFORMATION
  Report Type: Spontaneous
  Country: FR (occurrence: FR)
  Receive Date: 20180804
  Receipt Date: 20200922
  Transmission Date: 20201102
  Serious: Yes (Hospitalization)
  Sender: FDA-Public Use
  Company Number: FR-AUROBINDO-AUR-APL-2018-039298

PATIENT
  Age: 94 Year
  Sex: Female
  Weight: 43 kg

DRUGS (22)
  1. XANAX [Suspect]
     Active Substance: ALPRAZOLAM
     Indication: PRODUCT USED FOR UNKNOWN INDICATION
     Dosage: 0.5 DOSAGE FORM UNSPECIFIED
     Route: 048
  2. CORDARONE [Concomitant]
     Active Substance: AMIODARONE HYDROCHLORIDE
     Indication: PRODUCT USED FOR UNKNOWN INDICATION
     Dosage: UNK UNSPECIFIED
     Route: 048
  3. BISOPROLOL [Concomitant]
     Active Substance: BISOPROLOL
     Dosage: UNK
     Route: 048
  4. COTRIATEC [Concomitant]
     Active Substance: HYDROCHLOROTHIAZIDE\RAMIPRIL
     Dosage: UNK
     Route: 048
  5. MELAXOSE [Concomitant]
     Active Substance: LACTULOSE\PARAFFIN
     Indication: PRODUCT USED FOR UNKNOWN INDICATION
     Dosage: UNK
     Route: 048
  6. LASILIX [Concomitant]
     Active Substance: FUROSEMIDE
     Indication: PRODUCT USED FOR UNKNOWN INDICATION
     Dosage: 20 MILLIGRAM UNSPECIFIED
     Route: 048
  7. CORDARONE [Concomitant]
     Active Substance: AMIODARONE HYDROCHLORIDE
     Dosage: UNK UNSPECIFIED
     Route: 048
  8. KALEORID [Concomitant]
     Active Substance: POTASSIUM CHLORIDE
     Indication: PRODUCT USED FOR UNKNOWN INDICATION
     Dosage: UNK UNSPECIFIED
     Route: 048
  9. MELAXOSE [Concomitant]
     Active Substance: LACTULOSE\PARAFFIN
     Dosage: UNK
     Route: 048
  10. XANAX [Suspect]
     Active Substance: ALPRAZOLAM
     Dosage: 0.5 DOSAGE FORM UNSPECIFIED
     Route: 048
  11. KALEORID [Concomitant]
     Active Substance: POTASSIUM CHLORIDE
     Dosage: UNK UNSPECIFIED
     Route: 048
  12. MELAXOSE [Concomitant]
     Active Substance: LACTULOSE\PARAFFIN
     Dosage: UNK
     Route: 048
  13. BISOPROLOL [Concomitant]
     Active Substance: BISOPROLOL
     Indication: PRODUCT USED FOR UNKNOWN INDICATION
     Dosage: UNK
     Route: 048
  14. XANAX [Suspect]
     Active Substance: ALPRAZOLAM
     Dosage: 0.5 DOSAGE FORM UNSPECIFIED
     Route: 048
  15. KALEORID [Concomitant]
     Active Substance: POTASSIUM CHLORIDE
     Dosage: UNK UNSPECIFIED
     Route: 048
  16. BISOPROLOL [Concomitant]
     Active Substance: BISOPROLOL
     Dosage: UNK
     Route: 048
  17. RISPERDAL [Suspect]
     Active Substance: RISPERIDONE
     Indication: PRODUCT USED FOR UNKNOWN INDICATION
     Dosage: 0.5 MILLIGRAM (UNSPECIFIED, WITH 2.5 MG OF CUMULATIVE DOSE)
     Route: 048
     Dates: start: 20160624, end: 20160629
  18. IXPRIM [Suspect]
     Active Substance: ACETAMINOPHEN\TRAMADOL HYDROCHLORIDE
     Indication: PRODUCT USED FOR UNKNOWN INDICATION
     Dosage: UNK
     Route: 048
     Dates: end: 20160629
  19. COTRIATEC [Concomitant]
     Active Substance: HYDROCHLOROTHIAZIDE\RAMIPRIL
     Indication: PRODUCT USED FOR UNKNOWN INDICATION
     Dosage: UNK
     Route: 048
  20. COTRIATEC [Concomitant]
     Active Substance: HYDROCHLOROTHIAZIDE\RAMIPRIL
     Dosage: UNK
     Route: 048
  21. PAROXETINE. [Suspect]
     Active Substance: PAROXETINE
     Indication: PRODUCT USED FOR UNKNOWN INDICATION
     Dosage: 20 MILLIGRAM UNSPECIFIED
     Route: 048
     Dates: end: 20160629
  22. CORDARONE [Concomitant]
     Active Substance: AMIODARONE HYDROCHLORIDE
     Dosage: UNK UNSPECIFIED
     Route: 048

REACTIONS (5)
  - Altered visual depth perception [Recovered/Resolved]
  - Aggression [Recovered/Resolved]
  - Delusion [Recovered/Resolved]
  - Agitation [Recovered/Resolved]
  - Disorientation [Recovered/Resolved]

NARRATIVE: CASE EVENT DATE: 20160608
